FAERS Safety Report 21764108 (Version 3)
Quarter: 2023Q1

REPORT INFORMATION
  Report Type: Other
  Country: IT (occurrence: None)
  Receive Date: 20221222
  Receipt Date: 20230202
  Transmission Date: 20230417
  Serious: Yes (Other)
  Sender: FDA-Public Use
  Company Number: IT-ROCHE-3225548

PATIENT
  Age: 45 Year
  Sex: Female
  Weight: 65 kg

DRUGS (39)
  1. ADO-TRASTUZUMAB EMTANSINE [Suspect]
     Active Substance: ADO-TRASTUZUMAB EMTANSINE
     Indication: HER2 positive breast cancer
     Dosage: MOST RECENT DOSE ON 27/SEP/2021
     Route: 042
     Dates: start: 20200803
  2. PERTUZUMAB [Suspect]
     Active Substance: PERTUZUMAB
     Indication: HER2 positive breast cancer
     Dosage: MOST RECENT DOSE PRIOR TO THE EVENT: 09/MAY/2017
     Route: 041
     Dates: start: 20170418, end: 20170418
  3. TRASTUZUMAB [Suspect]
     Active Substance: TRASTUZUMAB
     Indication: HER2 positive breast cancer
     Dosage: MOST RECENT DOSE PRIOR TO THE EVENT: 9/MAY/2017
     Route: 041
     Dates: start: 20170418, end: 20170418
  4. TRASTUZUMAB [Suspect]
     Active Substance: TRASTUZUMAB
     Route: 041
     Dates: start: 20221121, end: 20230109
  5. TRASTUZUMAB [Suspect]
     Active Substance: TRASTUZUMAB
     Route: 041
     Dates: start: 20170509, end: 20200803
  6. DOCETAXEL [Suspect]
     Active Substance: DOCETAXEL
     Indication: HER2 positive breast cancer
     Dosage: MOST RECENT DOSE PRIOR TO THE EVENT: 09/MAY/2017
     Route: 042
     Dates: start: 20170418, end: 20170418
  7. DOCETAXEL [Suspect]
     Active Substance: DOCETAXEL
     Route: 042
     Dates: start: 20170509, end: 20170928
  8. EXEMESTANE [Suspect]
     Active Substance: EXEMESTANE
     Indication: HER2 positive breast cancer
     Dosage: MOST RECENT DOSE ON 03/AUG/2020
     Route: 048
     Dates: start: 20171019
  9. LEUPROLIDE ACETATE [Suspect]
     Active Substance: LEUPROLIDE ACETATE
     Indication: HER2 positive breast cancer
     Route: 058
     Dates: start: 20171019
  10. CHLORPHENIRAMINE MALEATE [Concomitant]
     Active Substance: CHLORPHENIRAMINE MALEATE
     Dosage: ONGOING = CHECKED
     Dates: start: 20170718
  11. MOVICOL [Concomitant]
     Active Substance: POLYETHYLENE GLYCOL 3350\POTASSIUM CHLORIDE\SODIUM BICARBONATE\SODIUM CHLORIDE
     Dosage: ONGOING = CHECKED
     Dates: start: 20220413
  12. ALDACTONE [Concomitant]
     Active Substance: SPIRONOLACTONE
     Dosage: ONGOING = CHECKED
     Dates: start: 20221012
  13. FUROSEMIDE [Concomitant]
     Active Substance: FUROSEMIDE
     Dosage: ONGOING = CHECKED
     Dates: start: 20221012
  14. OXYCODONE [Concomitant]
     Active Substance: OXYCODONE
     Dosage: ONGOING = CHECKED
     Dates: start: 20221109
  15. DIETARY SUPPLEMENT\HERBALS\MILK THISTLE [Concomitant]
     Active Substance: DIETARY SUPPLEMENT\HERBALS\MILK THISTLE
     Dosage: ONGOING = NOT CHECKED
     Dates: start: 20220316, end: 20221109
  16. CYMBALTA [Concomitant]
     Active Substance: DULOXETINE HYDROCHLORIDE
     Dosage: ONGOING = NOT CHECKED
     Dates: start: 20220622, end: 20221108
  17. FOLIC ACID [Concomitant]
     Active Substance: FOLIC ACID
     Dosage: ONGOING = CHECKED
     Dates: start: 20220622
  18. TIOBEC [THIOCTIC ACID] [Concomitant]
     Dosage: ONGOING = CHECKED
     Dates: start: 20220622
  19. CYANOCOBALAMIN\PYRIDOXINE\THIAMINE [Concomitant]
     Active Substance: CYANOCOBALAMIN\PYRIDOXINE\THIAMINE
     Dosage: ONGOING = CHECKED
     Dates: start: 20220622
  20. VARCODES [Concomitant]
     Dosage: ONGOING = CHECKED
     Dates: start: 20220727
  21. VARCODES [Concomitant]
     Dosage: ONGOING = CHECKED
     Dates: start: 20220921
  22. LEVETIRACETAM [Concomitant]
     Active Substance: LEVETIRACETAM
     Dosage: ONGOING = CHECKED
     Dates: start: 20210614
  23. LANSOPRAZOLE [Concomitant]
     Active Substance: LANSOPRAZOLE
     Dosage: ONGOING = CHECKED
     Dates: start: 20201005
  24. KEFIBIOS [Concomitant]
  25. ZOMETA [Concomitant]
     Active Substance: ZOLEDRONIC ACID
  26. IMIDAZYL [Concomitant]
  27. FILGRASTIM [Concomitant]
     Active Substance: FILGRASTIM
  28. PREDNISONE [Concomitant]
     Active Substance: PREDNISONE
  29. DEXAMETHASONE [Concomitant]
     Active Substance: DEXAMETHASONE
  30. LEVOSULPIRIDE [Concomitant]
     Active Substance: LEVOSULPIRIDE
  31. TOBRADEX [Concomitant]
     Active Substance: DEXAMETHASONE\TOBRAMYCIN
  32. NETTACIN [Concomitant]
  33. OXYCODONE [Concomitant]
     Active Substance: OXYCODONE
  34. DIETARY SUPPLEMENT\HERBALS\MILK THISTLE [Concomitant]
     Active Substance: DIETARY SUPPLEMENT\HERBALS\MILK THISTLE
  35. CYMBALTA [Concomitant]
     Active Substance: DULOXETINE HYDROCHLORIDE
  36. APREPITANT [Concomitant]
     Active Substance: APREPITANT
  37. AMITRIPTYLINE HYDROCHLORIDE [Concomitant]
     Active Substance: AMITRIPTYLINE HYDROCHLORIDE
  38. VARCODES [Concomitant]
  39. CYANOCOBALAMIN\PYRIDOXINE\THIAMINE [Concomitant]
     Active Substance: CYANOCOBALAMIN\PYRIDOXINE\THIAMINE

REACTIONS (1)
  - Deep vein thrombosis [Not Recovered/Not Resolved]

NARRATIVE: CASE EVENT DATE: 20221111
